FAERS Safety Report 13295715 (Version 3)
Quarter: 2017Q3

REPORT INFORMATION
  Report Type: Spontaneous
  Country: KR (occurrence: KR)
  Receive Date: 20170303
  Receipt Date: 20170825
  Transmission Date: 20171127
  Serious: No
  Sender: FDA-Public Use
  Company Number: KR-009507513-1703KOR001029

PATIENT
  Age: 50 Year
  Sex: Male
  Weight: 71 kg

DRUGS (58)
  1. DEXAMETHASONE. [Concomitant]
     Active Substance: DEXAMETHASONE
     Dosage: 0.5 MG, QD
     Route: 048
     Dates: start: 20161116
  2. ALOXI [Concomitant]
     Active Substance: PALONOSETRON HYDROCHLORIDE
     Dosage: 0.25 MG, ONCE
     Route: 042
     Dates: start: 20161122, end: 20161122
  3. LASIX [Concomitant]
     Active Substance: FUROSEMIDE
     Dosage: 20 MG, ONCE (STRENGHT : 20 MG/2 ML)
     Route: 042
     Dates: start: 20161213, end: 20161213
  4. PILOGEN [Concomitant]
     Indication: PROPHYLAXIS
     Dosage: 1 DF, TID
     Route: 048
     Dates: start: 20161101
  5. KCL HUONS [Concomitant]
     Indication: PROPHYLAXIS
     Dosage: 10 ML, BID
     Route: 042
     Dates: start: 20161101, end: 20161101
  6. KCL HUONS [Concomitant]
     Dosage: 10 ML, BID
     Route: 042
     Dates: start: 20161129, end: 20161129
  7. MAGNESIN (MAGNESIUM SULFATE) [Concomitant]
     Indication: PROPHYLAXIS
     Dosage: 10 ML, BID
     Route: 042
     Dates: start: 20161101, end: 20161101
  8. MAGNESIN (MAGNESIUM SULFATE) [Concomitant]
     Dosage: 10 ML, BID
     Route: 042
     Dates: start: 20161122, end: 20161122
  9. MAGNESIN (MAGNESIUM SULFATE) [Concomitant]
     Dosage: 10 ML, BID
     Route: 042
     Dates: start: 20161129, end: 20161129
  10. EMEND (FOSAPREPITANT DIMEGLUMINE) [Suspect]
     Active Substance: FOSAPREPITANT DIMEGLUMINE
     Indication: PROPHYLAXIS OF NAUSEA AND VOMITING
     Dosage: 150 MG, ONCE
     Route: 042
     Dates: start: 20161108, end: 20161108
  11. DEXAMETHASONE SODIUM PHOSPHATE. [Concomitant]
     Active Substance: DEXAMETHASONE SODIUM PHOSPHATE
     Dosage: 5 MG, ONCE, (STRENGTH: 5 MG/ML)
     Route: 042
     Dates: start: 20161115, end: 20161115
  12. DEXAMETHASONE SODIUM PHOSPHATE. [Concomitant]
     Active Substance: DEXAMETHASONE SODIUM PHOSPHATE
     Dosage: 5 MG, ONCE (STRENGTH: 5 MG/ML)
     Route: 042
     Dates: start: 20161122, end: 20161122
  13. MACPERAN [Concomitant]
     Active Substance: METOCLOPRAMIDE HYDROCHLORIDE
     Dosage: 1 TABLET, TID
     Route: 048
     Dates: start: 20161108, end: 20161112
  14. MACPERAN [Concomitant]
     Active Substance: METOCLOPRAMIDE HYDROCHLORIDE
     Dosage: 1 TABLET, TID
     Route: 048
     Dates: start: 20161129, end: 20161203
  15. KCL HUONS [Concomitant]
     Dosage: 10 ML, BID
     Route: 042
     Dates: start: 20161115, end: 20161115
  16. MACPERAN [Concomitant]
     Active Substance: METOCLOPRAMIDE HYDROCHLORIDE
     Indication: PROPHYLAXIS AGAINST GASTROINTESTINAL ULCER
     Dosage: 10 MG, ONCE
     Route: 042
     Dates: start: 20161101, end: 20161101
  17. EMEND (FOSAPREPITANT DIMEGLUMINE) [Suspect]
     Active Substance: FOSAPREPITANT DIMEGLUMINE
     Dosage: 150 MG, ONCE
     Route: 042
     Dates: start: 20161129, end: 20161129
  18. CISPLATIN. [Concomitant]
     Active Substance: CISPLATIN
     Dosage: 73 MG, ONCE, CYLCE 2
     Route: 042
     Dates: start: 20161115, end: 20161115
  19. DEXAMETHASONE SODIUM PHOSPHATE. [Concomitant]
     Active Substance: DEXAMETHASONE SODIUM PHOSPHATE
     Dosage: 5 MG, ONCE (STRENGTH: 5 MG/ML)
     Route: 042
     Dates: start: 20161213, end: 20161213
  20. DEXAMETHASONE. [Concomitant]
     Active Substance: DEXAMETHASONE
     Dosage: 0.5 MG, QD
     Route: 048
     Dates: start: 20161129, end: 20161201
  21. ALOXI [Concomitant]
     Active Substance: PALONOSETRON HYDROCHLORIDE
     Dosage: 5 ML, ONCE
     Route: 042
     Dates: start: 20161115, end: 20161115
  22. MAGNESIN (MAGNESIUM SULFATE) [Concomitant]
     Dosage: 10 ML, BID
     Route: 042
     Dates: start: 20161108, end: 20161108
  23. MAGNESIN (MAGNESIUM SULFATE) [Concomitant]
     Dosage: 10 ML, BID
     Route: 042
     Dates: start: 20161206, end: 20161206
  24. PLAKON [Concomitant]
     Indication: ALLERGY PROPHYLAXIS
     Dosage: 1.5 MG, ONCE, (STRENGHT 3 MG/2 ML)
     Route: 030
     Dates: start: 20161101, end: 20161101
  25. DEXAMETHASONE SODIUM PHOSPHATE. [Concomitant]
     Active Substance: DEXAMETHASONE SODIUM PHOSPHATE
     Indication: PROPHYLAXIS OF NAUSEA AND VOMITING
     Dosage: 5 MG, ONCE (STRENGTH: 5 MG/ML)
     Route: 042
     Dates: start: 20161108, end: 20161108
  26. DEXAMETHASONE SODIUM PHOSPHATE. [Concomitant]
     Active Substance: DEXAMETHASONE SODIUM PHOSPHATE
     Dosage: 5 MG, ONCE (STRENGTH: 5 MG/ML)
     Route: 042
     Dates: start: 20161206, end: 20161206
  27. ALOXI [Concomitant]
     Active Substance: PALONOSETRON HYDROCHLORIDE
     Dosage: 0.25MG, ONCE
     Route: 042
     Dates: start: 20161129, end: 20161129
  28. LASIX [Concomitant]
     Active Substance: FUROSEMIDE
     Indication: PROPHYLAXIS
     Dosage: 20 MG, ONCE (STRENGHT : 20 MG/2 ML)
     Route: 042
     Dates: start: 20161108, end: 20161108
  29. LASIX [Concomitant]
     Active Substance: FUROSEMIDE
     Dosage: 20 MG, ONCE (STRENGHT : 20 MG/2 ML)
     Route: 042
     Dates: start: 20161115, end: 20161115
  30. MACPERAN [Concomitant]
     Active Substance: METOCLOPRAMIDE HYDROCHLORIDE
     Dosage: 1 TABLET, TID
     Route: 048
     Dates: start: 20161031
  31. KCL HUONS [Concomitant]
     Dosage: 10 ML, BID
     Route: 042
     Dates: start: 20161108, end: 20161108
  32. KCL HUONS [Concomitant]
     Dosage: 10 ML, BID
     Route: 042
     Dates: start: 20161122, end: 20161122
  33. KCL HUONS [Concomitant]
     Dosage: 10 ML, BID
     Route: 042
     Dates: start: 20161206, end: 20161206
  34. KCL HUONS [Concomitant]
     Dosage: 10 ML, BID
     Route: 042
     Dates: start: 20161213, end: 20161213
  35. DEXAMETHASONE. [Concomitant]
     Active Substance: DEXAMETHASONE
     Dosage: 0.5 MG, QD
     Route: 048
     Dates: start: 20161213, end: 20161215
  36. ALOXI [Concomitant]
     Active Substance: PALONOSETRON HYDROCHLORIDE
     Dosage: 0.25 MG, ONCE
     Route: 042
     Dates: start: 20161213, end: 20161213
  37. MACPERAN [Concomitant]
     Active Substance: METOCLOPRAMIDE HYDROCHLORIDE
     Indication: PROPHYLAXIS AGAINST GASTROINTESTINAL ULCER
     Dosage: 1 TABLET, TID
     Route: 048
     Dates: start: 20161101, end: 20161105
  38. MACPERAN [Concomitant]
     Active Substance: METOCLOPRAMIDE HYDROCHLORIDE
     Dosage: 1 TABLET, TID
     Route: 048
     Dates: start: 20161213, end: 20161217
  39. EMEND (FOSAPREPITANT DIMEGLUMINE) [Suspect]
     Active Substance: FOSAPREPITANT DIMEGLUMINE
     Dosage: 150 MG, ONCE
     Route: 042
     Dates: start: 20161122, end: 20161122
  40. CISPLATIN. [Concomitant]
     Active Substance: CISPLATIN
     Indication: LARYNGEAL CANCER
     Dosage: 73 MG, ONCE, CYLCE 1
     Route: 042
     Dates: start: 20161108, end: 20161108
  41. DEXAMETHASONE. [Concomitant]
     Active Substance: DEXAMETHASONE
     Dosage: 0.5 MG, QD
     Route: 048
     Dates: start: 20161122, end: 20161124
  42. DEXAMETHASONE. [Concomitant]
     Active Substance: DEXAMETHASONE
     Dosage: 0.5 MG, QD
     Route: 048
     Dates: start: 20161206, end: 20161208
  43. MACPERAN [Concomitant]
     Active Substance: METOCLOPRAMIDE HYDROCHLORIDE
     Dosage: 1 TABLET, TID
     Route: 048
     Dates: start: 20161206, end: 20161210
  44. EMEND (FOSAPREPITANT DIMEGLUMINE) [Suspect]
     Active Substance: FOSAPREPITANT DIMEGLUMINE
     Dosage: 150 MG, ONCE
     Route: 042
     Dates: start: 20161115, end: 20161115
  45. EMEND (FOSAPREPITANT DIMEGLUMINE) [Suspect]
     Active Substance: FOSAPREPITANT DIMEGLUMINE
     Dosage: 150 MG, ONCE
     Route: 042
     Dates: start: 20161213, end: 20161213
  46. DEXAMETHASONE SODIUM PHOSPHATE. [Concomitant]
     Active Substance: DEXAMETHASONE SODIUM PHOSPHATE
     Dosage: 5 MG, ONCE (STRENGTH: 5 MG/ML)
     Route: 042
     Dates: start: 20161129, end: 20161129
  47. DEXAMETHASONE. [Concomitant]
     Active Substance: DEXAMETHASONE
     Indication: PROPHYLAXIS OF NAUSEA AND VOMITING
     Dosage: 0.5 MG, QD
     Route: 048
     Dates: start: 20161109, end: 20161111
  48. ALOXI [Concomitant]
     Active Substance: PALONOSETRON HYDROCHLORIDE
     Indication: PROPHYLAXIS OF NAUSEA AND VOMITING
     Dosage: 5 ML, ONCE
     Route: 042
     Dates: start: 20161108, end: 20161108
  49. NORVASC [Concomitant]
     Active Substance: AMLODIPINE BESYLATE
     Indication: HYPERTENSION
     Dosage: 5 MG, QD
     Route: 048
     Dates: start: 20161031
  50. MAGNESIN (MAGNESIUM SULFATE) [Concomitant]
     Dosage: 10 ML, BID
     Route: 042
     Dates: start: 20161213, end: 20161213
  51. EMEND (FOSAPREPITANT DIMEGLUMINE) [Suspect]
     Active Substance: FOSAPREPITANT DIMEGLUMINE
     Dosage: 150 MG, ONCE
     Route: 042
     Dates: start: 20161206, end: 20161206
  52. ALOXI [Concomitant]
     Active Substance: PALONOSETRON HYDROCHLORIDE
     Dosage: 0.25 MG, ONCE
     Route: 042
     Dates: start: 20161206, end: 20161206
  53. LASIX [Concomitant]
     Active Substance: FUROSEMIDE
     Dosage: 20 MG, ONCE (STRENGHT : 20 MG/2 ML)
     Route: 042
     Dates: start: 20161122, end: 20161122
  54. LASIX [Concomitant]
     Active Substance: FUROSEMIDE
     Dosage: 20 MG, ONCE (STRENGHT : 20 MG/2 ML)
     Route: 042
     Dates: start: 20161129, end: 20161129
  55. LASIX [Concomitant]
     Active Substance: FUROSEMIDE
     Dosage: 20 MG, ONCE (STRENGHT : 20 MG/2 ML)
     Route: 042
     Dates: start: 20161206, end: 20161206
  56. MACPERAN [Concomitant]
     Active Substance: METOCLOPRAMIDE HYDROCHLORIDE
     Dosage: 1 TABLET, TID
     Route: 048
     Dates: start: 20161115, end: 20161119
  57. MACPERAN [Concomitant]
     Active Substance: METOCLOPRAMIDE HYDROCHLORIDE
     Dosage: 1 TABLET, TID
     Route: 048
     Dates: start: 20161122, end: 20161126
  58. MAGNESIN (MAGNESIUM SULFATE) [Concomitant]
     Dosage: 10 ML, BID
     Route: 042
     Dates: start: 20161115, end: 20161115

REACTIONS (4)
  - Decreased appetite [Recovered/Resolved]
  - Cough [Recovered/Resolved]
  - Nausea [Recovered/Resolved]
  - Insomnia [Recovered/Resolved]

NARRATIVE: CASE EVENT DATE: 20161115
